FAERS Safety Report 24987433 (Version 2)
Quarter: 2025Q1

REPORT INFORMATION
  Report Type: Spontaneous
  Country: FR (occurrence: FR)
  Receive Date: 20250219
  Receipt Date: 20250220
  Transmission Date: 20250409
  Serious: Yes (Other)
  Sender: B BRAUN
  Company Number: FR-B.Braun Medical Inc.-2171442

PATIENT
  Age: 54 Year
  Sex: Male

DRUGS (4)
  1. ACETAMINOPHEN [Suspect]
     Active Substance: ACETAMINOPHEN
  2. HEROIN [Suspect]
     Active Substance: DIAMORPHINE
  3. NOSCAPINE [Suspect]
     Active Substance: NOSCAPINE
  4. CAFFEINE [Suspect]
     Active Substance: CAFFEINE

REACTIONS (2)
  - Substance use disorder [Not Recovered/Not Resolved]
  - Withdrawal syndrome [Recovered/Resolved]
